FAERS Safety Report 23131783 (Version 2)
Quarter: 2023Q4

REPORT INFORMATION
  Report Type: Spontaneous
  Country: IE (occurrence: IE)
  Receive Date: 20231031
  Receipt Date: 20231204
  Transmission Date: 20240110
  Serious: Yes (Hospitalization)
  Sender: FDA-Public Use
  Company Number: IE-BAXTER-2023BAX034225

PATIENT

DRUGS (3)
  1. SODIUM CHLORIDE [Suspect]
     Active Substance: SODIUM CHLORIDE
     Indication: Medication dilution
     Dosage: 230 ML (MILLILITRE), INFUSION VIA 23 HRS (HOURS) PUMP
     Route: 065
  2. PIPERACILLIN AND TAZOBACTAM [Suspect]
     Active Substance: PIPERACILLIN SODIUM\TAZOBACTAM SODIUM
     Dosage: 18000 MG (MILLIGRAM) DILUTED IN 230 ML (MILLILITRE) OF SODIUM CHLORIDE, INFUSION VIA 23 HRS (HOURS)
     Route: 065
  3. CITRATE [Suspect]
     Active Substance: CITRIC ACID MONOHYDRATE
     Dosage: (CITRATE BUFFER) AT AN UNSPECIFIED DOSE AND FREQUENCY
     Route: 065

REACTIONS (3)
  - Malaise [Unknown]
  - Pyrexia [Unknown]
  - Device infusion issue [Unknown]

NARRATIVE: CASE EVENT DATE: 20231021
